FAERS Safety Report 6081643-9 (Version None)
Quarter: 2009Q1

REPORT INFORMATION
  Report Type: 
  Country: None (occurrence: None)
  Receive Date: 20090218
  Receipt Date: 20090205
  Transmission Date: 20090719
  Serious: Yes (Other)
  Sender: FDA-Public Use
  Company Number: US-PFIZER INC-2009168921

PATIENT
  Sex: Male
  Weight: 104.32 kg

DRUGS (3)
  1. CHANTIX [Suspect]
     Indication: SMOKING CESSATION THERAPY
     Dates: start: 20081101
  2. CITALOPRAM HYDROBROMIDE [Concomitant]
     Dates: end: 20080101
  3. VITAMINS [Concomitant]
     Dates: end: 20090101

REACTIONS (2)
  - SUICIDAL IDEATION [None]
  - VIOLENCE-RELATED SYMPTOM [None]
